FAERS Safety Report 6678843-3 (Version None)
Quarter: 2010Q2

REPORT INFORMATION
  Report Type: 
  Country: None (occurrence: None)
  Receive Date: 20100406
  Receipt Date: 20090629
  Transmission Date: 20101027
  Serious: Yes (Disabling)
  Sender: FDA-Public Use
  Company Number: 2009BH010825

PATIENT
  Sex: Female

DRUGS (1)
  1. REGLAN [Suspect]
     Indication: GASTROOESOPHAGEAL REFLUX DISEASE
     Dosage: ;PO
     Dates: start: 20050101, end: 20050101

REACTIONS (1)
  - TARDIVE DYSKINESIA [None]
